FAERS Safety Report 11914519 (Version 2)
Quarter: 2016Q1

REPORT INFORMATION
  Report Type: Spontaneous
  Country: CL (occurrence: CL)
  Receive Date: 20160113
  Receipt Date: 20160201
  Transmission Date: 20160526
  Serious: Yes (Other)
  Sender: FDA-Public Use
  Company Number: CL-JNJFOC-20160104823

PATIENT
  Age: 33 Year
  Sex: Male

DRUGS (2)
  1. SIMPONI [Suspect]
     Active Substance: GOLIMUMAB
     Indication: PSORIATIC ARTHROPATHY
     Route: 058
     Dates: start: 20160122
  2. SIMPONI [Suspect]
     Active Substance: GOLIMUMAB
     Indication: PSORIATIC ARTHROPATHY
     Route: 058
     Dates: start: 20151125

REACTIONS (3)
  - Off label use [Not Recovered/Not Resolved]
  - Oral herpes [Recovered/Resolved]
  - Incorrect route of drug administration [Unknown]

NARRATIVE: CASE EVENT DATE: 201511
